FAERS Safety Report 16265119 (Version 1)
Quarter: 2019Q2

REPORT INFORMATION
  Report Type: Spontaneous
  Country: US (occurrence: US)
  Receive Date: 20190501
  Receipt Date: 20190501
  Transmission Date: 20190711
  Serious: Yes (Other)
  Sender: FDA-Public Use
  Company Number: None

PATIENT
  Age: 55 Year
  Sex: Female
  Weight: 72 kg

DRUGS (1)
  1. DYSPORT [Suspect]
     Active Substance: ABOBOTULINUMTOXINA
     Indication: SKIN WRINKLING
     Dosage: ?          QUANTITY:1 INJECTION(S);?
     Route: 061

REACTIONS (4)
  - Pain of skin [None]
  - Herpes zoster [None]
  - Facial pain [None]
  - Pruritus [None]

NARRATIVE: CASE EVENT DATE: 20190420
